FAERS Safety Report 6062286-X (Version None)
Quarter: 2009Q1

REPORT INFORMATION
  Report Type: 
  Country: None (occurrence: None)
  Receive Date: 20090203
  Receipt Date: 20090129
  Transmission Date: 20090719
  Serious: Yes (Life-Threatening)
  Sender: FDA-Public Use
  Company Number: JP-BRISTOL-MYERS SQUIBB COMPANY-14482434

PATIENT
  Age: 69 Year
  Sex: Male

DRUGS (4)
  1. TAXOL [Suspect]
     Indication: NON-SMALL CELL LUNG CANCER
     Route: 041
     Dates: start: 20081121, end: 20081205
  2. PARAPLATIN [Suspect]
     Indication: NON-SMALL CELL LUNG CANCER
     Route: 041
     Dates: start: 20081121, end: 20081121
  3. TRYPTANOL [Concomitant]
     Route: 048
     Dates: start: 20080901
  4. MOBIC [Concomitant]
     Route: 048
     Dates: start: 20080901

REACTIONS (1)
  - INTERSTITIAL LUNG DISEASE [None]
